FAERS Safety Report 8407584-7 (Version None)
Quarter: 2012Q2

REPORT INFORMATION
  Report Type: 
  Country: None (occurrence: None)
  Receive Date: 20120604
  Receipt Date: 20120524
  Transmission Date: 20120825
  Serious: Yes (Other)
  Sender: FDA-Public Use
  Company Number: US-ASTRAZENECA-2012SE23301

PATIENT
  Age: 61 Year
  Sex: Female
  Weight: 84.4 kg

DRUGS (18)
  1. VENTOLIN [Concomitant]
  2. ZYRTEC [Concomitant]
  3. SYMBICORT [Suspect]
     Indication: ASTHMA
     Dosage: 2 PUFFS IN MORNING, 2 PUFFS AT NIGHT
     Route: 055
  4. NEBULIZER [Concomitant]
  5. SYMBICORT [Suspect]
     Dosage: 1 PUFF BID
     Route: 055
  6. FOLIC ACID [Concomitant]
  7. SYMBICORT [Suspect]
     Indication: EMPHYSEMA
     Dosage: 2 PUFFS IN MORNING, 2 PUFFS AT NIGHT
     Route: 055
  8. DOPANEX [Concomitant]
  9. POTASSIUM CHLORIDE [Concomitant]
  10. OXYCODONE HYDROCHLORIDE [Concomitant]
  11. HYDROCHLOROTHIAZIDE [Concomitant]
  12. SYMBICORT [Suspect]
     Dosage: 1 PUFF BID
     Route: 055
  13. MAGNESIUM [Concomitant]
  14. VALIUM [Concomitant]
  15. SYMBICORT [Suspect]
     Indication: CHRONIC OBSTRUCTIVE PULMONARY DISEASE
     Dosage: 2 PUFFS IN MORNING, 2 PUFFS AT NIGHT
     Route: 055
  16. SYMBICORT [Suspect]
     Dosage: 1 PUFF BID
     Route: 055
  17. FLEXERIL [Concomitant]
  18. LIPITOR [Concomitant]

REACTIONS (6)
  - DEVICE DIFFICULT TO USE [None]
  - DYSPNOEA [None]
  - INTENTIONAL DRUG MISUSE [None]
  - LUNG CARCINOMA CELL TYPE UNSPECIFIED RECURRENT [None]
  - OFF LABEL USE [None]
  - METASTASES TO BONE [None]
